FAERS Safety Report 8582599-7 (Version None)
Quarter: 2012Q3

REPORT INFORMATION
  Report Type: 
  Country: None (occurrence: None)
  Receive Date: 20120809
  Receipt Date: 20120112
  Transmission Date: 20120928
  Serious: Yes (Other)
  Sender: FDA-Public Use
  Company Number: US-ROCHE-1098187

PATIENT
  Sex: Female

DRUGS (3)
  1. XOLAIR [Suspect]
     Indication: ASTHMA
  2. FLUTICASONE PROPIONATE [Concomitant]
  3. COMBIVENT [Concomitant]

REACTIONS (2)
  - POOR QUALITY SLEEP [None]
  - DYSPNOEA [None]
